FAERS Safety Report 12508682 (Version 2)
Quarter: 2016Q3

REPORT INFORMATION
  Report Type: Report from Study
  Country: US (occurrence: US)
  Receive Date: 20160629
  Receipt Date: 20160719
  Transmission Date: 20161109
  Serious: Yes (Other)
  Sender: FDA-Public Use
  Company Number: US-JNJFOC-20160417331

PATIENT
  Age: 74 Year
  Sex: Male

DRUGS (3)
  1. IMBRUVICA [Suspect]
     Active Substance: IBRUTINIB
     Indication: CHRONIC LYMPHOCYTIC LEUKAEMIA
     Route: 048
     Dates: start: 20160329
  2. CALCITRIOL. [Concomitant]
     Active Substance: CALCITRIOL
  3. OMEPRAZOLE. [Concomitant]
     Active Substance: OMEPRAZOLE

REACTIONS (20)
  - Memory impairment [Unknown]
  - Weight decreased [Unknown]
  - Dizziness [Unknown]
  - Dysphagia [Unknown]
  - Red blood cell count decreased [Unknown]
  - Fatigue [Unknown]
  - Renal failure [Not Recovered/Not Resolved]
  - Nerve injury [Unknown]
  - Confusional state [Unknown]
  - Feeling abnormal [Unknown]
  - Irritability [Unknown]
  - Incorrect dose administered [Not Recovered/Not Resolved]
  - Insomnia [Unknown]
  - Decreased appetite [Unknown]
  - Muscle spasms [Unknown]
  - Nausea [Unknown]
  - Haemoglobin decreased [Unknown]
  - Pruritus [Unknown]
  - Blood pressure increased [Unknown]
  - Off label use [Not Recovered/Not Resolved]

NARRATIVE: CASE EVENT DATE: 2016
